FAERS Safety Report 17031809 (Version 3)
Quarter: 2019Q4

REPORT INFORMATION
  Report Type: Report from Study
  Country: CA (occurrence: CA)
  Receive Date: 20191114
  Receipt Date: 20191211
  Transmission Date: 20200122
  Serious: Yes (Hospitalization)
  Sender: FDA-Public Use
  Company Number: CA-ACTELION-A-NJ2019-196138

PATIENT
  Age: 68 Year
  Sex: Female

DRUGS (21)
  1. ADCIRCA [Concomitant]
     Active Substance: TADALAFIL
  2. VITAMIN B12 [Concomitant]
     Active Substance: CYANOCOBALAMIN
  3. BOSENTAN. [Concomitant]
     Active Substance: BOSENTAN
     Indication: PULMONARY ARTERIAL HYPERTENSION
  4. URSODIOL. [Concomitant]
     Active Substance: URSODIOL
  5. LASIX [Concomitant]
     Active Substance: FUROSEMIDE
  6. RESTASIS [Concomitant]
     Active Substance: CYCLOSPORINE
  7. LOTEMAX [Concomitant]
     Active Substance: LOTEPREDNOL ETABONATE
     Route: 047
  8. UPTRAVI [Suspect]
     Active Substance: SELEXIPAG
     Indication: PULMONARY ARTERIAL HYPERTENSION
     Dosage: 1200 MCG, BID
     Route: 048
  9. UPTRAVI [Suspect]
     Active Substance: SELEXIPAG
     Dosage: 1000 MCG
     Route: 048
  10. UPTRAVI [Suspect]
     Active Substance: SELEXIPAG
     Dosage: 800 MCG
     Route: 048
  11. CRESTOR [Concomitant]
     Active Substance: ROSUVASTATIN CALCIUM
  12. MIRABEGRON [Concomitant]
     Active Substance: MIRABEGRON
  13. VITAMIN D [Concomitant]
     Active Substance: VITAMIN D NOS
  14. DEXAMETHASONE. [Concomitant]
     Active Substance: DEXAMETHASONE
  15. LANSOPRAZOLE. [Concomitant]
     Active Substance: LANSOPRAZOLE
  16. PROZAC [Concomitant]
     Active Substance: FLUOXETINE HYDROCHLORIDE
  17. OMEGA 3 [Concomitant]
     Active Substance: OMEGA-3 FATTY ACIDS
  18. UPTRAVI [Suspect]
     Active Substance: SELEXIPAG
     Dosage: 1000 MCG (800 MCG/200MCG)
     Route: 048
     Dates: start: 20191007
  19. UPTRAVI [Suspect]
     Active Substance: SELEXIPAG
     Dosage: 600 MCG, QD
     Route: 048
     Dates: start: 20190902
  20. UPTRAVI [Suspect]
     Active Substance: SELEXIPAG
     Dosage: 200 MCG/800MCG DOSE 1200 MCG
     Route: 048
  21. UPTRAVI [Suspect]
     Active Substance: SELEXIPAG
     Dosage: 1600 MCG
     Route: 048
     Dates: start: 20191125

REACTIONS (18)
  - Frequent bowel movements [Recovering/Resolving]
  - Dizziness [Recovered/Resolved]
  - Musculoskeletal stiffness [Recovered/Resolved]
  - Faeces discoloured [Not Recovered/Not Resolved]
  - Malaise [Recovered/Resolved]
  - Feeling abnormal [Recovered/Resolved]
  - Vomiting [Recovered/Resolved]
  - Nausea [Recovered/Resolved]
  - Gastric ulcer [Not Recovered/Not Resolved]
  - Pain [Not Recovered/Not Resolved]
  - Faeces soft [Recovered/Resolved]
  - Blood count abnormal [Unknown]
  - Gastrointestinal haemorrhage [Recovered/Resolved]
  - Oedema [Not Recovered/Not Resolved]
  - Abdominal pain [Not Recovered/Not Resolved]
  - Diarrhoea [Not Recovered/Not Resolved]
  - Gastric varices [Not Recovered/Not Resolved]
  - Headache [Not Recovered/Not Resolved]

NARRATIVE: CASE EVENT DATE: 20190930
